FAERS Safety Report 6296001-1 (Version None)
Quarter: 2009Q3

REPORT INFORMATION
  Report Type: 
  Country: None (occurrence: None)
  Receive Date: 20090804
  Receipt Date: 20090728
  Transmission Date: 20100115
  Serious: Yes (Other)
  Sender: FDA-Public Use
  Company Number: PHHO2009IT09382

PATIENT
  Sex: Female
  Weight: 88 kg

DRUGS (1)
  1. CERTICAN [Suspect]
     Indication: METASTATIC NEOPLASM
     Dosage: 10 MG/DAY
     Route: 048

REACTIONS (3)
  - BLOOD CHOLESTEROL INCREASED [None]
  - CHOLESTASIS [None]
  - GAMMA-GLUTAMYLTRANSFERASE INCREASED [None]
